FAERS Safety Report 10915785 (Version 1)
Quarter: 2015Q1

REPORT INFORMATION
  Report Type: Spontaneous
  Country: US (occurrence: US)
  Receive Date: 20150316
  Receipt Date: 20150316
  Transmission Date: 20150721
  Serious: Yes (Other)
  Sender: FDA-Public Use
  Company Number: US-AMGEN-USASP2015022848

PATIENT

DRUGS (2)
  1. ENBREL [Suspect]
     Active Substance: ETANERCEPT
     Indication: ANKYLOSING SPONDYLITIS
     Dosage: UNK
     Route: 065
  2. HUMIRA [Concomitant]
     Active Substance: ADALIMUMAB
     Dosage: UNK

REACTIONS (6)
  - Irritable bowel syndrome [Unknown]
  - Gastrointestinal disorder [Recovered/Resolved]
  - Therapeutic response decreased [Unknown]
  - Arthritis [Unknown]
  - Autoimmune disorder [Unknown]
  - Hearing impaired [Unknown]
